FAERS Safety Report 11278515 (Version 1)
Quarter: 2015Q3

REPORT INFORMATION
  Report Type: Spontaneous
  Country: US (occurrence: None)
  Receive Date: 20150716
  Receipt Date: 20150716
  Transmission Date: 20151125
  Serious: Yes (Life-Threatening)
  Sender: FDA-Public Use
  Company Number: None

PATIENT
  Age: 67 Year
  Sex: Male
  Weight: 88.9 kg

DRUGS (1)
  1. ANTIHEMOPHILIC FACTOR,HUMAN/VON WILLEBRAND FACTOR [Suspect]
     Active Substance: ANTIHEMOPHILIC FACTOR HUMAN\VON WILLEBRAND FACTOR HUMAN
     Dosage: 6150 UNITS ONCE IV
     Route: 042
     Dates: start: 20150508, end: 20150508

REACTIONS (11)
  - Hyperhidrosis [None]
  - Rash macular [None]
  - Dysarthria [None]
  - Bradycardia [None]
  - Flushing [None]
  - Posture abnormal [None]
  - Urticaria [None]
  - Staring [None]
  - Syncope [None]
  - Urinary incontinence [None]
  - Rash [None]

NARRATIVE: CASE EVENT DATE: 20150508
